FAERS Safety Report 15934651 (Version 2)
Quarter: 2019Q1

REPORT INFORMATION
  Report Type: Report from Study
  Country: GT (occurrence: GT)
  Receive Date: 20190207
  Receipt Date: 20190212
  Transmission Date: 20190417
  Serious: Yes (Death, Other)
  Sender: FDA-Public Use
  Company Number: PHHY2019GT022677

PATIENT
  Age: 61 Year
  Sex: Female
  Weight: 58.1 kg

DRUGS (2)
  1. LCZ696 [Suspect]
     Active Substance: SACUBITRIL\VALSARTAN
     Indication: CARDIAC FAILURE
     Dosage: 200 MG, BID
     Route: 048
     Dates: start: 20180905, end: 20190118
  2. WARFARIN [Suspect]
     Active Substance: WARFARIN
     Indication: PRODUCT USED FOR UNKNOWN INDICATION
     Route: 065

REACTIONS (4)
  - Sudden death [Fatal]
  - Pyrexia [Unknown]
  - Respiratory tract infection [Unknown]
  - Overdose [Fatal]

NARRATIVE: CASE EVENT DATE: 20190118
